FAERS Safety Report 21090094 (Version 2)
Quarter: 2022Q3

REPORT INFORMATION
  Report Type: Spontaneous
  Country: JP (occurrence: JP)
  Receive Date: 20220715
  Receipt Date: 20220823
  Transmission Date: 20221027
  Serious: Yes (Death)
  Sender: FDA-Public Use
  Company Number: JP-DSJP-DSJ-2022-116496

PATIENT
  Age: 44 Year
  Sex: Male
  Weight: 53.1 kg

DRUGS (10)
  1. ENHERTU [Suspect]
     Active Substance: FAM-TRASTUZUMAB DERUXTECAN-NXKI
     Indication: HER2 positive gastric cancer
     Dosage: 5.7 MG/KG, ONCE EVERY 3 WK
     Route: 041
     Dates: start: 20211102, end: 20211102
  2. ENHERTU [Suspect]
     Active Substance: FAM-TRASTUZUMAB DERUXTECAN-NXKI
     Dosage: 5.7 MG/KG, ONCE EVERY 3 WK
     Route: 041
     Dates: start: 20211130, end: 20211130
  3. ENHERTU [Suspect]
     Active Substance: FAM-TRASTUZUMAB DERUXTECAN-NXKI
     Dosage: 5.2 MG/KG, ONCE EVERY 3 WK
     Route: 041
     Dates: start: 20211221, end: 20211221
  4. ENHERTU [Suspect]
     Active Substance: FAM-TRASTUZUMAB DERUXTECAN-NXKI
     Dosage: 5.2 MG/KG, ONCE EVERY 3 WK
     Route: 041
     Dates: start: 20220111, end: 20220111
  5. ENHERTU [Suspect]
     Active Substance: FAM-TRASTUZUMAB DERUXTECAN-NXKI
     Dosage: 5.2 MG/KG, ONCE EVERY 3 WK
     Route: 041
     Dates: start: 20220201, end: 20220201
  6. ENHERTU [Suspect]
     Active Substance: FAM-TRASTUZUMAB DERUXTECAN-NXKI
     Dosage: 5.2 MG/KG, ONCE EVERY 3 WK
     Route: 041
     Dates: start: 20220222, end: 20220222
  7. ENHERTU [Suspect]
     Active Substance: FAM-TRASTUZUMAB DERUXTECAN-NXKI
     Dosage: 5.2 MG/KG, ONCE EVERY 3 WK
     Route: 041
     Dates: start: 20220315, end: 20220315
  8. NIVOLUMAB [Concomitant]
     Active Substance: NIVOLUMAB
     Dosage: UNK
     Route: 065
     Dates: start: 20220426
  9. GIMERACIL\OTERACIL\TEGAFUR [Concomitant]
     Active Substance: GIMERACIL\OTERACIL\TEGAFUR
     Dosage: UNK
     Route: 065
     Dates: start: 20220426
  10. OXALIPLATIN [Concomitant]
     Active Substance: OXALIPLATIN
     Dosage: UNK
     Route: 065
     Dates: start: 20220426

REACTIONS (3)
  - Disease progression [Fatal]
  - Malaise [Unknown]
  - Underdose [Unknown]

NARRATIVE: CASE EVENT DATE: 20211102
